FAERS Safety Report 4468214-2 (Version None)
Quarter: 2004Q4

REPORT INFORMATION
  Report Type: 
  Country: None (occurrence: None)
  Receive Date: 20041004
  Receipt Date: 20040920
  Transmission Date: 20050328
  Serious: Yes (Hospitalization, Other)
  Sender: FDA-Public Use
  Company Number: 2004065537

PATIENT
  Age: 81 Year
  Sex: Male

DRUGS (4)
  1. CARDURA XL [Suspect]
     Indication: BENIGN PROSTATIC HYPERPLASIA
     Dosage: 2 MG (2 MG, 1 IN 1 D), ORAL
     Route: 048
     Dates: start: 20040810, end: 20040811
  2. CARVEDILOL [Concomitant]
  3. FOSINOPRIL SODIUM [Concomitant]
  4. FUROSEMIDE [Concomitant]

REACTIONS (6)
  - ASTHENIA [None]
  - BLOOD PRESSURE IMMEASURABLE [None]
  - CEREBROVASCULAR DISORDER [None]
  - CYANOSIS [None]
  - HYPOPERFUSION [None]
  - PNEUMONIA [None]
